FAERS Safety Report 8991089 (Version 1)
Quarter: 2012Q4

REPORT INFORMATION
  Report Type: 
  Country: GB (occurrence: None)
  Receive Date: 20121220
  Receipt Date: 20121220
  Transmission Date: 20130627
  Serious: Yes (Death, Hospitalization, Other)
  Sender: FDA-Public Use
  Company Number: 2012ST000164

PATIENT
  Age: 70 Year
  Sex: Male

DRUGS (1)
  1. METFORMIN (METFORMIN) [Suspect]
     Indication: TYPE 2 DIABETES MELLITUS

REACTIONS (13)
  - Intentional overdose [None]
  - Lactic acidosis [None]
  - Vomiting [None]
  - Agitation [None]
  - Confusional state [None]
  - Abdominal pain [None]
  - Atrial fibrillation [None]
  - Cardiac disorder [None]
  - Pneumonia [None]
  - Renal failure acute [None]
  - Continuous haemodiafiltration [None]
  - Suicide attempt [None]
  - Refusal of treatment by patient [None]
